FAERS Safety Report 16513878 (Version 3)
Quarter: 2023Q2

REPORT INFORMATION
  Report Type: Spontaneous
  Country: IT (occurrence: IT)
  Receive Date: 20190702
  Receipt Date: 20230413
  Transmission Date: 20230721
  Serious: Yes (Other)
  Sender: FDA-Public Use
  Company Number: IT-002147023-PHHY2019IT002175

PATIENT
  Age: 78 Year
  Sex: Female

DRUGS (5)
  1. RISEDRONATE SODIUM [Suspect]
     Active Substance: RISEDRONATE SODIUM
     Indication: Thyroid cancer
     Dosage: 35 MILLIGRAM, QW
     Route: 065
  2. CALCIUM [Suspect]
     Active Substance: CALCIUM
     Indication: Thyroid cancer
     Dosage: 1 GRAM, MONTHLY
     Route: 048
  3. VITAMIN D [Suspect]
     Active Substance: VITAMIN D NOS
     Indication: Thyroid cancer
     Dosage: 50000 DOSAGE FORM, MONTHLY
     Route: 048
  4. TERIPARATIDE [Suspect]
     Active Substance: TERIPARATIDE
     Indication: Product used for unknown indication
     Dosage: 20 MICROGRAM, QD
     Route: 065
  5. RAMIPRIL [Concomitant]
     Active Substance: RAMIPRIL
     Indication: Hypertension
     Dosage: 5 MILLIGRAM, QD
     Route: 065

REACTIONS (3)
  - Calciphylaxis [Recovered/Resolved]
  - Ulcer [Recovered/Resolved]
  - Pain [Recovered/Resolved]
